FAERS Safety Report 5048700-7 (Version None)
Quarter: 2006Q3

REPORT INFORMATION
  Report Type: 
  Country: None (occurrence: None)
  Receive Date: 20060705
  Receipt Date: 20060626
  Transmission Date: 20061208
  Serious: Yes (Other)
  Sender: FDA-Public Use
  Company Number: DEWYE799626JUN06

PATIENT
  Age: 45 Year
  Sex: Male

DRUGS (12)
  1. VENLAFAXINE HCL [Suspect]
     Dosage: 75 MG, ORAL
     Route: 048
     Dates: start: 20060117, end: 20060117
  2. PROMETHAZINE [Suspect]
     Dosage: 100 MG, ORAL
     Route: 048
     Dates: start: 20060116, end: 20060117
  3. MIRTAZAPINE [Suspect]
     Dosage: SEE IMAGE, ORAL
     Route: 048
     Dates: start: 20051017, end: 20051017
  4. MIRTAZAPINE [Suspect]
     Dosage: SEE IMAGE, ORAL
     Route: 048
     Dates: start: 20051018, end: 20051130
  5. MIRTAZAPINE [Suspect]
     Dosage: SEE IMAGE, ORAL
     Route: 048
     Dates: start: 20051201
  6. ZOLOFT [Suspect]
     Dosage: SEE IMAGE, ORAL
     Route: 048
     Dates: start: 20051025, end: 20051121
  7. ZOLOFT [Suspect]
     Dosage: SEE IMAGE, ORAL
     Route: 048
     Dates: start: 20051122, end: 20051123
  8. ZOLOFT [Suspect]
     Dosage: SEE IMAGE, ORAL
     Route: 048
     Dates: start: 20051124, end: 20060116
  9. SOLIAN (AMISULPRIDE) [Concomitant]
  10. LORAZEPAM [Concomitant]
  11. STAURODORM NEU (FLURAZEPAM) [Concomitant]
  12. ASPIRIN [Concomitant]

REACTIONS (8)
  - ANXIETY [None]
  - DRUG INTERACTION [None]
  - HALLUCINATION, VISUAL [None]
  - HEADACHE [None]
  - ILL-DEFINED DISORDER [None]
  - MALAISE [None]
  - SINUS TACHYCARDIA [None]
  - VERTIGO [None]
